FAERS Safety Report 8521599-X (Version None)
Quarter: 2012Q3

REPORT INFORMATION
  Report Type: 
  Country: None (occurrence: None)
  Receive Date: 20120719
  Receipt Date: 20120716
  Transmission Date: 20120928
  Serious: Yes (Death, Other)
  Sender: FDA-Public Use
  Company Number: PHHY2012BR061361

PATIENT
  Sex: Male

DRUGS (4)
  1. MEMANTINE HYDROCHLORIDE [Concomitant]
     Indication: DEMENTIA ALZHEIMER'S TYPE
     Dosage: 2 DF, QD
     Route: 048
     Dates: start: 20100101, end: 20120701
  2. PAROXETINE [Concomitant]
     Indication: ANXIETY
     Dosage: 1 DF, QD
     Route: 048
     Dates: end: 20120701
  3. RISPERIDONE [Concomitant]
     Indication: ANXIETY
     Dosage: 1 DF, QD
     Dates: end: 20120701
  4. STALEVO 100 [Suspect]
     Indication: PARKINSON'S DISEASE
     Dosage: 2 DF, QD
     Route: 048

REACTIONS (4)
  - ASTHENIA [None]
  - PNEUMONIA [None]
  - MALIGNANT MELANOMA [None]
  - MULTI-ORGAN FAILURE [None]
